FAERS Safety Report 20781395 (Version 3)
Quarter: 2022Q2

REPORT INFORMATION
  Report Type: Report from Study
  Country: CA (occurrence: CA)
  Receive Date: 20220504
  Receipt Date: 20220513
  Transmission Date: 20220721
  Serious: Yes (Life-Threatening, Hospitalization, Other)
  Sender: FDA-Public Use
  Company Number: CA-JNJFOC-20211252171

PATIENT
  Age: 53 Year
  Sex: Male
  Weight: 112.3 kg

DRUGS (2)
  1. REMICADE [Suspect]
     Active Substance: INFLIXIMAB
     Indication: Crohn^s disease
     Route: 042
     Dates: start: 20181127
  2. REMICADE [Suspect]
     Active Substance: INFLIXIMAB
     Dosage: PATIENT RECEIVED THE INFUSION ON 17-MAR-2022
     Route: 042

REACTIONS (8)
  - Hospitalisation [Unknown]
  - Stoma site haemorrhage [Unknown]
  - Ileostomy [Unknown]
  - Stoma site oedema [Unknown]
  - Dialysis [Unknown]
  - Abdominal pain [Not Recovered/Not Resolved]
  - Fistula [Recovered/Resolved]
  - SARS-CoV-2 test positive [Unknown]

NARRATIVE: CASE EVENT DATE: 20211212
